FAERS Safety Report 4666744-1 (Version None)
Quarter: 2005Q2

REPORT INFORMATION
  Report Type: 
  Country: None (occurrence: None)
  Receive Date: 20050517
  Receipt Date: 20050504
  Transmission Date: 20051028
  Serious: Yes (Other)
  Sender: FDA-Public Use
  Company Number: 601266

PATIENT
  Sex: Male

DRUGS (2)
  1. PROPLEX [Suspect]
     Indication: FACTOR IX DEFICIENCY
     Dates: start: 19740101, end: 19900101
  2. KONYNE [Suspect]
     Indication: FACTOR IX DEFICIENCY
     Dates: start: 19740101, end: 19900101

REACTIONS (1)
  - HEPATITIS C [None]
